FAERS Safety Report 25405540 (Version 3)
Quarter: 2025Q3

REPORT INFORMATION
  Report Type: Spontaneous
  Country: JP (occurrence: JP)
  Receive Date: 20250606
  Receipt Date: 20250930
  Transmission Date: 20251020
  Serious: Yes (Death, Other)
  Sender: CITIUS PHARMACEUTICALS
  Company Number: JP-CITIUS PHARMACEUTICALS, INC.-2025CTS000017

PATIENT

DRUGS (1)
  1. DENILEUKIN DIFTITOX [Suspect]
     Active Substance: DENILEUKIN DIFTITOX
     Indication: Peripheral T-cell lymphoma unspecified
     Route: 041
     Dates: start: 20250512, end: 20250520

REACTIONS (3)
  - Death [Fatal]
  - Hypoxia [Unknown]
  - Blood pressure decreased [Unknown]

NARRATIVE: CASE EVENT DATE: 20250522
